FAERS Safety Report 7200639-4 (Version None)
Quarter: 2010Q4

REPORT INFORMATION
  Report Type: 
  Country: None (occurrence: None)
  Receive Date: 20101228
  Receipt Date: 20101222
  Transmission Date: 20110411
  Serious: Yes (Life-Threatening, Hospitalization)
  Sender: FDA-Public Use
  Company Number: JP-PFIZER INC-2009176565

PATIENT
  Age: 72 Year
  Sex: Male
  Weight: 63.7 kg

DRUGS (4)
  1. SUNITINIB MALATE [Suspect]
     Indication: RENAL CELL CARCINOMA
     Dosage: 50 MG, 1X/DAY
     Route: 048
     Dates: start: 20081114, end: 20081130
  2. METFORMIN HCL [Concomitant]
     Dosage: UNK
     Route: 048
  3. MAG-LAX [Concomitant]
     Route: 048
     Dates: start: 20081115, end: 20081127
  4. NOVORAPID [Concomitant]
     Dosage: UNK
     Route: 058

REACTIONS (6)
  - ALANINE AMINOTRANSFERASE INCREASED [None]
  - ASPARTATE AMINOTRANSFERASE INCREASED [None]
  - FEBRILE NEUTROPENIA [None]
  - LIVER DISORDER [None]
  - PLATELET COUNT DECREASED [None]
  - WHITE BLOOD CELL COUNT DECREASED [None]
